FAERS Safety Report 6998548-9 (Version None)
Quarter: 2010Q3

REPORT INFORMATION
  Report Type: 
  Country: None (occurrence: None)
  Receive Date: 20100920
  Receipt Date: 20100426
  Transmission Date: 20110219
  Serious: Yes (Other)
  Sender: FDA-Public Use
  Company Number: US-ASTRAZENECA-2010SE15019

PATIENT
  Age: 12039 Day
  Sex: Male
  Weight: 88.9 kg

DRUGS (5)
  1. SEROQUEL XR [Suspect]
     Indication: DEPRESSION
     Route: 048
  2. SEROQUEL XR [Suspect]
     Route: 048
     Dates: start: 20100215, end: 20100408
  3. SEROQUEL XR [Suspect]
     Route: 048
  4. ZOLOFT [Concomitant]
     Indication: DEPRESSION
     Route: 048
     Dates: start: 20100215
  5. XANAX [Concomitant]
     Indication: ANXIETY
     Route: 048
     Dates: start: 20100215

REACTIONS (2)
  - EXTRAPYRAMIDAL DISORDER [None]
  - HYPERTONIA [None]
